FAERS Safety Report 16233276 (Version 1)
Quarter: 2019Q2

REPORT INFORMATION
  Report Type: Spontaneous
  Country: US (occurrence: US)
  Receive Date: 20190424
  Receipt Date: 20190424
  Transmission Date: 20190711
  Serious: No
  Sender: FDA-Public Use
  Company Number: PHEH2019US017013

PATIENT
  Sex: Male

DRUGS (1)
  1. AFINITOR [Suspect]
     Active Substance: EVEROLIMUS
     Indication: CHEMOTHERAPY MULTIPLE AGENTS SYSTEMIC
     Dosage: 5 MG, QD
     Route: 048

REACTIONS (3)
  - Decreased appetite [Unknown]
  - Diarrhoea [Unknown]
  - Weight decreased [Unknown]
